FAERS Safety Report 5648778-3 (Version None)
Quarter: 2008Q1

REPORT INFORMATION
  Report Type: 
  Country: None (occurrence: None)
  Receive Date: 20080131
  Receipt Date: 20071204
  Transmission Date: 20080703
  Serious: No
  Sender: FDA-Public Use
  Company Number: US200712001064

PATIENT
  Age: 60 Year
  Sex: Male

DRUGS (3)
  1. BYETTA [Suspect]
     Indication: TYPE 2 DIABETES MELLITUS
     Dosage: 5,10  UG, 2/D, SUBCUTANEOUS
     Route: 058
     Dates: start: 20050101, end: 20050101
  2. BYETTA [Suspect]
     Indication: TYPE 2 DIABETES MELLITUS
     Dosage: 5,10  UG, 2/D, SUBCUTANEOUS
     Route: 058
     Dates: start: 20050101
  3. METFORMIN HCL [Concomitant]

REACTIONS (2)
  - INJECTION SITE CYST [None]
  - INJECTION SITE PAIN [None]
